FAERS Safety Report 6650263-7 (Version None)
Quarter: 2010Q1

REPORT INFORMATION
  Report Type: 
  Country: None (occurrence: None)
  Receive Date: 20100325
  Receipt Date: 20100315
  Transmission Date: 20100710
  Serious: Yes (Other)
  Sender: FDA-Public Use
  Company Number: ES-JNJFOC-20100304270

PATIENT
  Age: 28 Year
  Sex: Male
  Weight: 70 kg

DRUGS (3)
  1. REMICADE [Suspect]
     Indication: DRUG DEPENDENCE
     Dosage: 300 MG DOSE, RECEIVED 4 DOSES (3 INDUCTION, 1 MAINT)
     Route: 042
     Dates: start: 20090917, end: 20091229
  2. IMUREL [Suspect]
     Indication: DRUG DEPENDENCE
     Route: 048
  3. PENTASA [Concomitant]
     Indication: COLITIS ULCERATIVE
     Dosage: DOSAGE ALSO REPORTED AS 1 G EVERY 12 HOURS
     Route: 048

REACTIONS (10)
  - ABDOMINAL PAIN [None]
  - ASTHENIA [None]
  - BLOOD LACTATE DEHYDROGENASE INCREASED [None]
  - CYTOMEGALOVIRUS INFECTION [None]
  - DECREASED APPETITE [None]
  - IMMUNOSUPPRESSION [None]
  - MUSCULOSKELETAL DISCOMFORT [None]
  - MYALGIA [None]
  - PAIN IN EXTREMITY [None]
  - TUBERCULOUS PLEURISY [None]
